FAERS Safety Report 10236988 (Version 1)
Quarter: 2014Q2

REPORT INFORMATION
  Report Type: Spontaneous
  Country: BR (occurrence: AR)
  Receive Date: 20140613
  Receipt Date: 20140613
  Transmission Date: 20141212
  Serious: Yes (Death)
  Sender: FDA-Public Use
  Company Number: PHHY2014AR073593

PATIENT
  Age: 92 Year
  Sex: Female

DRUGS (1)
  1. EXELON [Suspect]
     Dosage: 4.5 MG, UNK
     Route: 048
     Dates: start: 2009

REACTIONS (2)
  - Cardio-respiratory arrest [Fatal]
  - Death [Fatal]
